FAERS Safety Report 13272701 (Version 1)
Quarter: 2017Q1

REPORT INFORMATION
  Report Type: Spontaneous
  Country: US (occurrence: US)
  Receive Date: 20170224
  Receipt Date: 20170224
  Transmission Date: 20170428
  Serious: Yes (Other)
  Sender: FDA-Public Use
  Company Number: None

PATIENT
  Age: 35 Year
  Sex: Female
  Weight: 118.04 kg

DRUGS (1)
  1. PROAIR RESPICLICK [Suspect]
     Active Substance: ALBUTEROL SULFATE

REACTIONS (6)
  - Dyspnoea [None]
  - Therapy non-responder [None]
  - Condition aggravated [None]
  - Chest discomfort [None]
  - Device difficult to use [None]
  - Economic problem [None]

NARRATIVE: CASE EVENT DATE: 20170221
